FAERS Safety Report 16038918 (Version 2)
Quarter: 2019Q1

REPORT INFORMATION
  Report Type: Report from Study
  Country: CO (occurrence: CO)
  Receive Date: 20190306
  Receipt Date: 20190320
  Transmission Date: 20190418
  Serious: Yes (Other)
  Sender: FDA-Public Use
  Company Number: PHHY2019CO046220

PATIENT
  Age: 17 Year
  Sex: Male

DRUGS (1)
  1. REVOLADE [Suspect]
     Active Substance: ELTROMBOPAG
     Indication: IMMUNE THROMBOCYTOPENIC PURPURA
     Dosage: 50 MG, QD
     Route: 048
     Dates: start: 20190222

REACTIONS (4)
  - Epistaxis [Unknown]
  - Haemorrhage [Unknown]
  - Thrombosis [Unknown]
  - Headache [Recovered/Resolved]

NARRATIVE: CASE EVENT DATE: 20190224
